FAERS Safety Report 8772746 (Version 1)
Quarter: 2012Q4

REPORT INFORMATION
  Report Type: 
  Country: IE (occurrence: IE)
  Receive Date: 20120907
  Receipt Date: 20120907
  Transmission Date: 20130627
  Serious: Yes (Other)
  Sender: FDA-Public Use
  Company Number: IE-UCBSA-064902

PATIENT
  Age: 31 Year
  Sex: Female
  Weight: 67.4 kg

DRUGS (6)
  1. KEPPRA [Suspect]
     Indication: CONVULSION
     Route: 048
     Dates: start: 20120516
  2. DABRAFENIB [Concomitant]
     Indication: MALIGNANT MELANOMA
     Route: 048
     Dates: start: 20120523
  3. RIVOTRIL [Suspect]
     Indication: RESTLESS LEGS SYNDROME
     Dosage: AT NIGHT
  4. ESOMEPRAZOLE [Concomitant]
     Indication: PEPTIC ULCER
  5. METFORMIN [Concomitant]
     Indication: HYPERGLYCAEMIA
  6. SLOW-K [Concomitant]
     Indication: HYPOKALAEMIA

REACTIONS (2)
  - Hypokalaemia [Recovered/Resolved]
  - Aspartate aminotransferase increased [Recovered/Resolved]
